FAERS Safety Report 5456404-1 (Version None)
Quarter: 2007Q3

REPORT INFORMATION
  Report Type: 
  Country: None (occurrence: None)
  Receive Date: 20070917
  Receipt Date: 20070917
  Transmission Date: 20080115
  Serious: Yes (Other)
  Sender: FDA-Public Use
  Company Number: None

PATIENT
  Sex: Male
  Weight: 84.7 kg

DRUGS (1)
  1. VYTORIN [Suspect]
     Indication: UNEVALUABLE EVENT
     Dosage: 10/10 1 MONTH BUT EZETIMIBE ONLY BEFORE

REACTIONS (2)
  - PAIN [None]
  - VITAMIN D DECREASED [None]
